FAERS Safety Report 17447358 (Version 7)
Quarter: 2020Q2

REPORT INFORMATION
  Report Type: Spontaneous
  Country: US (occurrence: US)
  Receive Date: 20200221
  Receipt Date: 20200403
  Transmission Date: 20200713
  Serious: Yes (Other)
  Sender: FDA-Public Use
  Company Number: NVSC2020US048484

PATIENT
  Age: 79 Year
  Sex: Female
  Weight: 70.76 kg

DRUGS (9)
  1. LOVAZA [Concomitant]
     Active Substance: OMEGA-3-ACID ETHYL ESTERS
     Indication: PRODUCT USED FOR UNKNOWN INDICATION
     Dosage: 1000 MG, UNKNOWN
     Route: 048
  2. MELATONIN [Concomitant]
     Active Substance: MELATONIN
     Indication: PRODUCT USED FOR UNKNOWN INDICATION
     Dosage: UNK
     Route: 065
  3. BEOVU [Suspect]
     Active Substance: BROLUCIZUMAB-DBLL
     Indication: AGE-RELATED MACULAR DEGENERATION
     Dosage: 6 MG, ONCE/SINGLE
     Route: 047
     Dates: start: 20200116
  4. FOLIC ACID. [Concomitant]
     Active Substance: FOLIC ACID
     Indication: PRODUCT USED FOR UNKNOWN INDICATION
     Dosage: UNK
     Route: 065
  5. BEOVU [Suspect]
     Active Substance: BROLUCIZUMAB-DBLL
     Dosage: UNK
     Route: 065
     Dates: start: 202001
  6. ATENOLOL. [Concomitant]
     Active Substance: ATENOLOL
     Indication: PRODUCT USED FOR UNKNOWN INDICATION
     Dosage: 1 DF, UNKNOWN
     Route: 048
  7. LOSARTAN POTASSIUM. [Concomitant]
     Active Substance: LOSARTAN POTASSIUM
     Indication: PRODUCT USED FOR UNKNOWN INDICATION
     Dosage: 50 MG, UNKNOWN
     Route: 048
  8. OMEGA-3-ACID ETHYL ESTER [Concomitant]
     Active Substance: OMEGA-3-ACID ETHYL ESTERS
     Indication: PRODUCT USED FOR UNKNOWN INDICATION
     Dosage: UNK
     Route: 065
  9. BUFFERIN [Concomitant]
     Active Substance: ASPIRIN
     Dosage: 81 MG, UNKNOWN
     Route: 048

REACTIONS (26)
  - Non-infectious endophthalmitis [Unknown]
  - Eye inflammation [Unknown]
  - Eye pruritus [Unknown]
  - Peripheral ischaemia [Not Recovered/Not Resolved]
  - Joint swelling [Unknown]
  - Iritis [Unknown]
  - Visual impairment [Unknown]
  - Retinal vasculitis [Unknown]
  - Thyroid disorder [Unknown]
  - Blood pressure systolic increased [Unknown]
  - Eye haemorrhage [Not Recovered/Not Resolved]
  - Herpes simplex [Unknown]
  - Anaemia [Unknown]
  - Intraocular pressure increased [Unknown]
  - Lacrimation increased [Unknown]
  - Vision blurred [Unknown]
  - Eye pain [Unknown]
  - Uveitis [Unknown]
  - Photopsia [Unknown]
  - Visual acuity tests abnormal [Not Recovered/Not Resolved]
  - Heart rate decreased [Unknown]
  - Hallucination, visual [Unknown]
  - Retinal vascular occlusion [Unknown]
  - Ocular hyperaemia [Unknown]
  - Foreign body sensation in eyes [Unknown]
  - Blindness [Unknown]

NARRATIVE: CASE EVENT DATE: 20200205
